FAERS Safety Report 13754042 (Version 1)
Quarter: 2017Q3

REPORT INFORMATION
  Report Type: Spontaneous
  Country: US (occurrence: US)
  Receive Date: 20170714
  Receipt Date: 20170714
  Transmission Date: 20171127
  Serious: Yes (Disabling)
  Sender: FDA-Public Use
  Company Number: None

PATIENT
  Age: 67 Year
  Sex: Male
  Weight: 81.9 kg

DRUGS (3)
  1. DESVENLAFAXINE. [Suspect]
     Active Substance: DESVENLAFAXINE
     Indication: DEPRESSION
     Dosage: ?          OTHER STRENGTH:MG/MG;QUANTITY:1 TABLET(S);?
     Route: 048
     Dates: start: 20170702, end: 20170714
  2. PRISTIQ EXTENDED-RELEASE [Concomitant]
     Active Substance: DESVENLAFAXINE SUCCINATE
  3. SIMSVASTATIN [Concomitant]

REACTIONS (5)
  - Product quality issue [None]
  - Abdominal pain upper [None]
  - Drug ineffective [None]
  - Night sweats [None]
  - Product substitution issue [None]

NARRATIVE: CASE EVENT DATE: 20170710
